FAERS Safety Report 12410558 (Version 1)
Quarter: 2016Q2

REPORT INFORMATION
  Report Type: Spontaneous
  Country: US (occurrence: None)
  Receive Date: 20160526
  Receipt Date: 20160526
  Transmission Date: 20160815
  Serious: No
  Sender: FDA-Public Use
  Company Number: None

PATIENT
  Sex: Male

DRUGS (3)
  1. TRADJENTA [Suspect]
     Active Substance: LINAGLIPTIN
  2. GLIPIZIDE. [Suspect]
     Active Substance: GLIPIZIDE
  3. APIDRA [Suspect]
     Active Substance: INSULIN GLULISINE

REACTIONS (3)
  - Renal disorder [None]
  - Pain in extremity [None]
  - Glycosylated haemoglobin increased [None]
